FAERS Safety Report 18186617 (Version 1)
Quarter: 2020Q3

REPORT INFORMATION
  Report Type: Spontaneous
  Country: US (occurrence: US)
  Receive Date: 20200822
  Receipt Date: 20200822
  Transmission Date: 20201103
  Serious: Yes (Death)
  Sender: FDA-Public Use
  Company Number: None

PATIENT
  Age: 61 Year
  Sex: Male

DRUGS (1)
  1. TACROLIMUS (DR REDDY) [Suspect]
     Active Substance: TACROLIMUS
     Indication: RENAL TRANSPLANT
     Dosage: ?          OTHER DOSE:2 CAPSULES;?
     Route: 048
     Dates: start: 201707

REACTIONS (1)
  - Infection [None]

NARRATIVE: CASE EVENT DATE: 20200811
